FAERS Safety Report 8166295-6 (Version None)
Quarter: 2012Q1

REPORT INFORMATION
  Report Type: 
  Country: None (occurrence: None)
  Receive Date: 20120227
  Receipt Date: 20110623
  Transmission Date: 20120608
  Serious: No
  Sender: FDA-Public Use
  Company Number: US-MYLANLABS-2011S1011281

PATIENT
  Age: 17 Year
  Sex: Male
  Weight: 69.85 kg

DRUGS (1)
  1. AMNESTEEM [Suspect]
     Indication: ACNE CYSTIC
     Route: 048
     Dates: start: 20101201, end: 20110401

REACTIONS (4)
  - SOCIAL AVOIDANT BEHAVIOUR [None]
  - DEPRESSION [None]
  - DECREASED INTEREST [None]
  - EDUCATIONAL PROBLEM [None]
